FAERS Safety Report 7223574-4 (Version None)
Quarter: 2011Q1

REPORT INFORMATION
  Report Type: 
  Country: None (occurrence: None)
  Receive Date: 20110112
  Receipt Date: 20100830
  Transmission Date: 20110831
  Serious: No
  Sender: FDA-Public Use
  Company Number: US-ALLERGAN-1011203US

PATIENT
  Age: 59 Year
  Sex: Female

DRUGS (2)
  1. REFRESH LIQUIGEL OPHTHALMIC [Concomitant]
     Indication: DRY EYE
     Dosage: 1 GTT, Q 2-3 HOURS
     Route: 047
     Dates: start: 20100830
  2. RESTASIS [Suspect]
     Indication: DRY EYE
     Dosage: 1 GTT, BID
     Route: 047

REACTIONS (3)
  - EYE PRURITUS [None]
  - OCULAR HYPERAEMIA [None]
  - LACRIMATION INCREASED [None]
